FAERS Safety Report 7232348-X (Version None)
Quarter: 2011Q1

REPORT INFORMATION
  Report Type: 
  Country: None (occurrence: None)
  Receive Date: 20110119
  Receipt Date: 20110107
  Transmission Date: 20110831
  Serious: Yes (Hospitalization)
  Sender: FDA-Public Use
  Company Number: BR-JNJFOC-20110104056

PATIENT
  Sex: Male
  Weight: 103.7 kg

DRUGS (10)
  1. ACETYLSALICYLIC  ACID [Concomitant]
  2. METFORMIN [Concomitant]
  3. AMLODIPINE [Concomitant]
  4. NEXIUM [Concomitant]
     Indication: GASTROINTESTINAL DISORDER THERAPY
     Dosage: 20 OR 40MG/DAY
  5. IBUPROFEN [Suspect]
     Indication: OSTEOARTHRITIS
     Route: 048
  6. ENALAPRIL [Concomitant]
  7. ATENOLOL [Concomitant]
  8. AMITRIPTYLINE [Concomitant]
  9. HYDROCHLOROTHIAZIDE [Concomitant]
  10. SIMVASTATIN [Concomitant]

REACTIONS (1)
  - ATRIOVENTRICULAR BLOCK [None]
